FAERS Safety Report 15146936 (Version 1)
Quarter: 2018Q3

REPORT INFORMATION
  Report Type: Report from Study
  Country: US (occurrence: US)
  Receive Date: 20180716
  Receipt Date: 20180716
  Transmission Date: 20181010
  Serious: Yes (Hospitalization)
  Sender: FDA-Public Use
  Company Number: US-ROCHE-2151733

PATIENT
  Age: 68 Year
  Sex: Male
  Weight: 103 kg

DRUGS (2)
  1. OBINUTUZUMAB. [Suspect]
     Active Substance: OBINUTUZUMAB
     Indication: B-CELL LYMPHOMA
     Dosage: MOST RECENT DOSE ON 30/JUN/2018
     Route: 042
     Dates: start: 20180619
  2. LENALIDOMIDE [Suspect]
     Active Substance: LENALIDOMIDE
     Indication: B-CELL LYMPHOMA
     Dosage: MOST RECENT DOSE ON 19/JUN/2018
     Route: 048
     Dates: start: 20180619

REACTIONS (5)
  - Vertigo [Recovered/Resolved]
  - Diplopia [Recovered/Resolved]
  - Arteriosclerosis [Recovered/Resolved]
  - Nausea [Recovered/Resolved]
  - Vertebral artery occlusion [Recovered/Resolved]

NARRATIVE: CASE EVENT DATE: 20180630
